FAERS Safety Report 9360747 (Version 1)
Quarter: 2013Q2

REPORT INFORMATION
  Report Type: Spontaneous
  Country: US (occurrence: US)
  Receive Date: 20130621
  Receipt Date: 20130621
  Transmission Date: 20140414
  Serious: No
  Sender: FDA-Public Use
  Company Number: US-BAYER-2013-076265

PATIENT
  Age: 84 Year
  Sex: Female
  Weight: 63.95 kg

DRUGS (8)
  1. ALEVE TABLET [Suspect]
     Indication: ARTHRITIS
     Dosage: TWO IN MORNING AND ONE AT NIGHT, QD
     Route: 048
     Dates: start: 20130602
  2. ONE A DAY WOMEN^S 50+ ADVANTAGE [Concomitant]
  3. BAYER ASPIRIN REGIMEN ADULT LOW STRENGTH [Concomitant]
  4. FISH OIL [Concomitant]
  5. EVISTA [RALOXIFENE HYDROCHLORIDE] [Concomitant]
  6. VITAMIN D [Concomitant]
  7. LEVOTHYROXINE [Concomitant]
  8. ANAGRELIDE [Concomitant]

REACTIONS (2)
  - Drug ineffective [None]
  - Incorrect drug administration duration [None]
